FAERS Safety Report 12442715 (Version 3)
Quarter: 2016Q3

REPORT INFORMATION
  Report Type: Report from Study
  Country: US (occurrence: US)
  Receive Date: 20160607
  Receipt Date: 20160802
  Transmission Date: 20161109
  Serious: Yes (Death, Other)
  Sender: FDA-Public Use
  Company Number: US-PFIZER INC-2016281012

PATIENT
  Age: 67 Year
  Sex: Male

DRUGS (1)
  1. PHENYTOIN SODIUM. [Suspect]
     Active Substance: PHENYTOIN SODIUM
     Indication: ARRHYTHMIA
     Dosage: 250 MG, OVER 1 MIN
     Route: 042

REACTIONS (5)
  - Apnoea [Fatal]
  - Toxicity to various agents [Fatal]
  - Incorrect drug administration rate [Fatal]
  - Hypotension [Fatal]
  - Drug ineffective for unapproved indication [Unknown]
